FAERS Safety Report 18765571 (Version 1)
Quarter: 2021Q1

REPORT INFORMATION
  Report Type: Spontaneous
  Country: US (occurrence: US)
  Receive Date: 20210120
  Receipt Date: 20210120
  Transmission Date: 20210419
  Serious: No
  Sender: FDA-Public Use
  Company Number: US-ENDO PHARMACEUTICALS INC-2019-111131

PATIENT
  Age: 62 Year
  Sex: Male

DRUGS (2)
  1. XANAX [Concomitant]
     Active Substance: ALPRAZOLAM
     Indication: PRODUCT USED FOR UNKNOWN INDICATION
     Dosage: UNK UNKNOWN, HAS TO TAKE PRODUCT WITH A 6 HOURS BEFORE OR AFTER
     Route: 065
  2. HYDROCODONE BITARTRATE AND ACETAMINOPHEN [Suspect]
     Active Substance: ACETAMINOPHEN\HYDROCODONE BITARTRATE
     Indication: PAIN
     Dosage: 1 DF, TWO TIMES A DAY AS NEEDED
     Route: 048
     Dates: start: 2014

REACTIONS (8)
  - Therapeutic product effect incomplete [Unknown]
  - Drug screen negative [Unknown]
  - Diarrhoea [Unknown]
  - Dehydration [Unknown]
  - Drug screen negative [Unknown]
  - Blood pressure increased [Unknown]
  - Drug screen negative [Unknown]
  - Product residue present [Unknown]

NARRATIVE: CASE EVENT DATE: 20190802
